FAERS Safety Report 23790826 (Version 1)
Quarter: 2024Q2

REPORT INFORMATION
  Report Type: Spontaneous
  Country: US (occurrence: US)
  Receive Date: 20240427
  Receipt Date: 20240427
  Transmission Date: 20240716
  Serious: No
  Sender: FDA-Public Use
  Company Number: US-AMGEN-USASP2024083052

PATIENT
  Sex: Female

DRUGS (2)
  1. REPATHA [Suspect]
     Active Substance: EVOLOCUMAB
     Indication: Hyperlipidaemia
     Dosage: UNK, Q2WK
     Route: 065
  2. REPATHA [Suspect]
     Active Substance: EVOLOCUMAB
     Indication: Arteriosclerosis

REACTIONS (6)
  - Skin irritation [Unknown]
  - Injection site erythema [Unknown]
  - Pruritus [Unknown]
  - Arthralgia [Not Recovered/Not Resolved]
  - Myalgia [Unknown]
  - Fatigue [Unknown]
